FAERS Safety Report 9022276 (Version 2)
Quarter: 2013Q1

REPORT INFORMATION
  Report Type: Spontaneous
  Country: CA (occurrence: CA)
  Receive Date: 20130118
  Receipt Date: 20130129
  Transmission Date: 20140127
  Serious: Yes (Hospitalization)
  Sender: FDA-Public Use
  Company Number: CA-AMGEN-CANSP2013001690

PATIENT
  Age: 77 Year
  Sex: Male
  Weight: 76.36 kg

DRUGS (3)
  1. PROLIA [Suspect]
     Indication: OSTEOPOROSIS
     Dosage: 60 MG, Q6MO
     Route: 058
     Dates: start: 20121221
  2. HYDROCHLOROTHIAZIDE [Concomitant]
     Indication: HYPERTENSION
     Dosage: 12.5 UNK, QD
     Route: 048
  3. AVAPRO [Concomitant]
     Indication: HYPERTENSION
     Dosage: 300 UNK, QD
     Route: 048

REACTIONS (1)
  - Hypertensive crisis [Recovered/Resolved]
